FAERS Safety Report 8165424-8 (Version None)
Quarter: 2012Q1

REPORT INFORMATION
  Report Type: 
  Country: None (occurrence: None)
  Receive Date: 20120227
  Receipt Date: 20120221
  Transmission Date: 20120608
  Serious: Yes (Life-Threatening, Hospitalization)
  Sender: FDA-Public Use
  Company Number: US-BAYER-2011-093744

PATIENT
  Age: 29 Year
  Sex: Female

DRUGS (9)
  1. VICODIN [Concomitant]
  2. YAZ [Suspect]
  3. DROSPIRENONE AND ETHINYL ESTRADIOL [Suspect]
  4. SOMA [Concomitant]
     Dosage: 350 MG, UNK
  5. PAXIL [Concomitant]
     Dosage: 50 MG, UNK
  6. ELAVIL [Concomitant]
     Dosage: 10 MG, UNK
  7. YASMIN [Suspect]
  8. PAXIL [Concomitant]
     Dosage: 25 MG, UNK
  9. MORPHINE [Concomitant]
     Dosage: UNK
     Dates: start: 20031027

REACTIONS (7)
  - EMOTIONAL DISTRESS [None]
  - PAIN [None]
  - INJURY [None]
  - ANHEDONIA [None]
  - GENERAL PHYSICAL HEALTH DETERIORATION [None]
  - MYOCARDIAL INFARCTION [None]
  - ANXIETY [None]
